FAERS Safety Report 5676020-6 (Version None)
Quarter: 2008Q1

REPORT INFORMATION
  Report Type: 
  Country: None (occurrence: None)
  Receive Date: 20080318
  Receipt Date: 20080303
  Transmission Date: 20080703
  Serious: No
  Sender: FDA-Public Use
  Company Number: 1-15868937/MED-08055

PATIENT
  Age: 64 Year
  Sex: Male

DRUGS (1)
  1. ALLOPURINOL [Suspect]
     Indication: PODAGRA
     Dosage: 300 MG DAILY, ORAL
     Route: 048

REACTIONS (7)
  - DIFFUSE MESANGIAL SCLEROSIS [None]
  - EPISTAXIS [None]
  - FATIGUE [None]
  - NEPHRITIS INTERSTITIAL [None]
  - PRURITUS [None]
  - RENAL FAILURE CHRONIC [None]
  - RENAL TUBULAR ATROPHY [None]
